FAERS Safety Report 25046733 (Version 2)
Quarter: 2025Q1

REPORT INFORMATION
  Report Type: Report from Study
  Country: US (occurrence: US)
  Receive Date: 20250306
  Receipt Date: 20250319
  Transmission Date: 20250409
  Serious: No
  Sender: DR REDDYS
  Company Number: US-DRL-USA-USA/2025/02/002764

PATIENT
  Age: 30 Year
  Sex: Female
  Weight: 82.2 kg

DRUGS (1)
  1. JAVYGTOR [Suspect]
     Active Substance: SAPROPTERIN DIHYDROCHLORIDE
     Indication: Phenylketonuria
     Dosage: WITH LUNCH
     Route: 048
     Dates: start: 20250215

REACTIONS (3)
  - Exposure during pregnancy [Unknown]
  - Product dose omission issue [Unknown]
  - Morning sickness [Not Recovered/Not Resolved]

NARRATIVE: CASE EVENT DATE: 20250215
